FAERS Safety Report 22606276 (Version 1)
Quarter: 2023Q2

REPORT INFORMATION
  Report Type: Spontaneous
  Country: US (occurrence: US)
  Receive Date: 20230615
  Receipt Date: 20230615
  Transmission Date: 20230722
  Serious: No
  Sender: FDA-Public Use
  Company Number: US-JNJFOC-20230605687

PATIENT
  Age: 82 Year
  Sex: Female

DRUGS (1)
  1. IMODIUM MULTI-SYMPTOM RELIEF [Suspect]
     Active Substance: DIMETHICONE\LOPERAMIDE HYDROCHLORIDE
     Indication: Diarrhoea
     Dosage: HALF OF THE PILL
     Route: 065
     Dates: start: 202212

REACTIONS (3)
  - Incorrect dose administered [Unknown]
  - Incorrect product administration duration [Unknown]
  - Product packaging difficult to open [Unknown]

NARRATIVE: CASE EVENT DATE: 20221201
